FAERS Safety Report 8692837 (Version 2)
Quarter: 2012Q4

REPORT INFORMATION
  Report Type: 
  Country: US (occurrence: US)
  Receive Date: 20120730
  Receipt Date: 20121024
  Transmission Date: 20130627
  Serious: Yes (Other)
  Sender: FDA-Public Use
  Company Number: US-ELI_LILLY_AND_COMPANY-US201207006645

PATIENT
  Sex: Female
  Weight: 54.42 kg

DRUGS (1)
  1. EVISTA [Suspect]
     Dosage: 60 mg, qd
     Route: 048
     Dates: start: 2007

REACTIONS (1)
  - Breast cancer stage I [Recovering/Resolving]
